FAERS Safety Report 8229897-4 (Version None)
Quarter: 2012Q1

REPORT INFORMATION
  Report Type: 
  Country: None (occurrence: None)
  Receive Date: 20120323
  Receipt Date: 20120313
  Transmission Date: 20120608
  Serious: Yes (Hospitalization)
  Sender: FDA-Public Use
  Company Number: US-BIOGENIDEC-2011BI048102

PATIENT
  Sex: Female

DRUGS (2)
  1. AVONEX [Suspect]
     Indication: MULTIPLE SCLEROSIS
     Route: 030
     Dates: start: 20010530
  2. AVONEX [Suspect]
     Route: 030
     Dates: start: 20111104

REACTIONS (4)
  - DRUG DELIVERY DEVICE IMPLANTATION [None]
  - MUSCLE SPASMS [None]
  - GAIT DISTURBANCE [None]
  - EPIDURAL TEST DOSE [None]
